FAERS Safety Report 14347179 (Version 1)
Quarter: 2018Q1

REPORT INFORMATION
  Report Type: Spontaneous
  Country: FR (occurrence: FR)
  Receive Date: 20180103
  Receipt Date: 20180103
  Transmission Date: 20180509
  Serious: Yes (Hospitalization, Other)
  Sender: FDA-Public Use
  Company Number: FR-RARE DISEASE THERAPEUTICS, INC.-2038243

PATIENT
  Age: 10 Year
  Sex: Female
  Weight: 41 kg

DRUGS (21)
  1. PURIXAN [Suspect]
     Active Substance: MERCAPTOPURINE
     Indication: ACUTE LYMPHOCYTIC LEUKAEMIA
     Route: 048
     Dates: start: 20170412
  2. VINCRISTINE [Suspect]
     Active Substance: VINCRISTINE
     Route: 042
     Dates: start: 20170518, end: 20170518
  3. DEBRIDAT [Concomitant]
     Active Substance: TRIMEBUTINE MALEATE
  4. PEGASPARGASE [Suspect]
     Active Substance: PEGASPARGASE
     Route: 042
     Dates: start: 20170419, end: 20170419
  5. METHOTREXATE. [Suspect]
     Active Substance: METHOTREXATE
     Route: 037
     Dates: start: 20170413, end: 20170511
  6. VINCRISTINE [Suspect]
     Active Substance: VINCRISTINE
     Route: 042
     Dates: start: 20170412, end: 20170412
  7. FASTURTEC [Concomitant]
     Active Substance: RASBURICASE
  8. PEGASPARGASE [Suspect]
     Active Substance: PEGASPARGASE
     Route: 042
     Dates: start: 20170518, end: 20170518
  9. DEXAMETHASONE. [Suspect]
     Active Substance: DEXAMETHASONE
     Route: 048
     Dates: start: 20170412, end: 20170516
  10. PLITICAN [Concomitant]
     Active Substance: ALIZAPRIDE HYDROCHLORIDE
  11. ROCEPHINE [Concomitant]
     Active Substance: CEFTRIAXONE SODIUM
  12. ATARAX [Concomitant]
     Active Substance: HYDROXYZINE HYDROCHLORIDE
  13. EUPANTOL [Concomitant]
     Active Substance: PANTOPRAZOLE SODIUM
  14. BACTRIM [Concomitant]
     Active Substance: SULFAMETHOXAZOLE\TRIMETHOPRIM
  15. METHOTREXATE. [Suspect]
     Active Substance: METHOTREXATE
     Route: 037
     Dates: start: 20170511, end: 20170511
  16. PERFALGAN [Concomitant]
     Active Substance: ACETAMINOPHEN
  17. ZOPHREN [Concomitant]
     Active Substance: ONDANSETRON
  18. VANCOCINE [Concomitant]
     Active Substance: VANCOMYCIN
  19. VITAMIN K [Concomitant]
     Active Substance: PHYTONADIONE
  20. ACLOTINE [Concomitant]
     Active Substance: ANTITHROMBIN III HUMAN
  21. NUBAIN [Concomitant]
     Active Substance: NALBUPHINE HYDROCHLORIDE

REACTIONS (3)
  - Superior sagittal sinus thrombosis [Recovered/Resolved]
  - Cerebral ischaemia [Recovered/Resolved]
  - Transverse sinus thrombosis [Recovered/Resolved]

NARRATIVE: CASE EVENT DATE: 20170524
